FAERS Safety Report 15661304 (Version 1)
Quarter: 2018Q4

REPORT INFORMATION
  Report Type: Spontaneous
  Country: US (occurrence: US)
  Receive Date: 20181127
  Receipt Date: 20181127
  Transmission Date: 20190205
  Serious: Yes (Other)
  Sender: FDA-Public Use
  Company Number: US-NOVOPROD-621470

PATIENT
  Age: 71 Year
  Sex: Male

DRUGS (3)
  1. NOVOLOG [Suspect]
     Active Substance: INSULIN ASPART
     Indication: TYPE 2 DIABETES MELLITUS
     Dosage: 25 U (BASAL RATE, CORRECTION RATE IS 1 UNIT EVERY 10 CARBS ABOVE TARGET)
     Route: 058
     Dates: start: 20150101
  2. NOVOLOG [Suspect]
     Active Substance: INSULIN ASPART
     Dosage: 175 UNITS PER 24 HOURS FOR 4 DAYS
     Route: 058
     Dates: start: 20180908
  3. NOVOLOG [Suspect]
     Active Substance: INSULIN ASPART
     Dosage: 25 U (BASAL RATE, CORRECTION RATE IS 1 UNIT EVERY 10 CARBS ABOVE TARGET)
     Route: 058

REACTIONS (3)
  - Blood glucose increased [Recovered/Resolved]
  - Meniscus injury [Unknown]
  - Vertigo [Recovered/Resolved]

NARRATIVE: CASE EVENT DATE: 201807
